FAERS Safety Report 6318567-5 (Version None)
Quarter: 2009Q3

REPORT INFORMATION
  Report Type: 
  Country: None (occurrence: None)
  Receive Date: 20090821
  Receipt Date: 20090814
  Transmission Date: 20100115
  Serious: Yes (Other)
  Sender: FDA-Public Use
  Company Number: PHHO2009FR10071

PATIENT
  Sex: Female

DRUGS (7)
  1. RAD 666 RAD+TAB [Suspect]
     Indication: ENDOMETRIAL CANCER METASTATIC
  2. TAMOXIFEN CITRATE [Suspect]
     Indication: ENDOMETRIAL CANCER METASTATIC
     Dosage: OPEN-LABEL
     Dates: start: 20081103, end: 20090527
  3. STABLON [Concomitant]
  4. XANAX [Concomitant]
  5. REQUIP [Concomitant]
  6. ALDACTONE [Concomitant]
  7. LASIX [Concomitant]

REACTIONS (2)
  - DEEP VEIN THROMBOSIS [None]
  - THROMBOPHLEBITIS SUPERFICIAL [None]
